FAERS Safety Report 18694923 (Version 2)
Quarter: 2023Q1

REPORT INFORMATION
  Report Type: Other
  Country: US (occurrence: None)
  Receive Date: 20210104
  Receipt Date: 20230327
  Transmission Date: 20230417
  Serious: Yes (Death)
  Sender: FDA-Public Use
  Company Number: US-ROCHE-2743409

PATIENT
  Age: 18 Year
  Sex: Female

DRUGS (6)
  1. MYCOPHENOLATE MOFETIL [Suspect]
     Active Substance: MYCOPHENOLATE MOFETIL
     Indication: Prophylaxis against graft versus host disease
     Dosage: MAXIMUM DOSE OF 1000 MG, FROM DAY -2 TO +30.
     Route: 065
  2. MYCOPHENOLATE MOFETIL [Suspect]
     Active Substance: MYCOPHENOLATE MOFETIL
     Indication: Aplastic anaemia
  3. ABATACEPT [Suspect]
     Active Substance: ABATACEPT
     Indication: Prophylaxis against graft versus host disease
     Dosage: BASED ON ACTUAL WEIGHT, WITH A MAXIMUM DOSE OF 1000 MG, ON DAYS -1, +5, +14, AND +28 OVER 1 HOUR
     Route: 042
  4. CYCLOSPORINE [Suspect]
     Active Substance: CYCLOSPORINE
     Indication: Prophylaxis against graft versus host disease
     Dosage: INITIATED ON DAY -3, TO MAINTAIN A LEVEL OF 200-300 NG/ML AND TAPER INITIATED BETWEEN DAY +100 AND +
     Route: 065
  5. CYCLOSPORINE [Suspect]
     Active Substance: CYCLOSPORINE
     Indication: Aplastic anaemia
  6. DIPHENHYDRAMINE [Concomitant]
     Active Substance: DIPHENHYDRAMINE

REACTIONS (2)
  - Bone marrow failure [Fatal]
  - Fusarium infection [Fatal]
